FAERS Safety Report 7416000-3 (Version None)
Quarter: 2011Q2

REPORT INFORMATION
  Report Type: 
  Country: None (occurrence: None)
  Receive Date: 20110406
  Receipt Date: 20110320
  Transmission Date: 20111010
  Serious: Yes (Hospitalization)
  Sender: FDA-Public Use
  Company Number: 030205

PATIENT
  Sex: Female

DRUGS (2)
  1. CERTOLIZUMAB PEGOL (CERTOLIZUMAB PEGOL) [Suspect]
     Indication: RHEUMATOID ARTHRITIS
     Dosage: (400 MG 1X/2 WEEKS, SYUDY: 275-08-003: WEEK 0, 2 AND 4 SUBCUTANEOUS), (200 MG 1X/2 WEEKS, STUDY: 275
     Route: 058
     Dates: start: 20100709
  2. TACROLIMUS [Concomitant]

REACTIONS (3)
  - BLOOD PRESSURE DECREASED [None]
  - SEPTIC SHOCK [None]
  - UPPER RESPIRATORY TRACT INFECTION [None]
